FAERS Safety Report 6104858-X (Version None)
Quarter: 2009Q1

REPORT INFORMATION
  Report Type: 
  Country: None (occurrence: None)
  Receive Date: 20090306
  Receipt Date: 20090227
  Transmission Date: 20090719
  Serious: Yes (Hospitalization)
  Sender: FDA-Public Use
  Company Number: US-JNJFOC-20090300077

PATIENT
  Sex: Female
  Weight: 73.48 kg

DRUGS (7)
  1. DURAGESIC-100 [Suspect]
     Indication: BACK PAIN
     Route: 062
  2. MORPHINE [Suspect]
     Indication: NEURALGIA
     Route: 065
  3. MORPHINE [Suspect]
     Indication: BREAKTHROUGH PAIN
     Route: 065
  4. LYRICA [Suspect]
     Indication: NEURALGIA
     Route: 065
  5. TIZANIDINE HCL [Concomitant]
     Indication: MUSCLE RELAXANT THERAPY
     Route: 048
  6. ALLEGRA D 24 HOUR [Concomitant]
     Indication: MULTIPLE ALLERGIES
     Route: 048
  7. FLONASE [Concomitant]
     Indication: MULTIPLE ALLERGIES
     Dosage: ONE SPRAY ONCE DAILY
     Route: 045

REACTIONS (8)
  - ABDOMINAL PAIN UPPER [None]
  - APPLICATION SITE RASH [None]
  - BREAKTHROUGH PAIN [None]
  - CONSTIPATION [None]
  - DEPRESSION [None]
  - HYSTERECTOMY [None]
  - NEURALGIA [None]
  - WRONG TECHNIQUE IN DRUG USAGE PROCESS [None]
